FAERS Safety Report 10819279 (Version 1)
Quarter: 2015Q1

REPORT INFORMATION
  Report Type: Report from Study
  Country: US (occurrence: US)
  Receive Date: 20150218
  Receipt Date: 20150218
  Transmission Date: 20150721
  Serious: No
  Sender: FDA-Public Use
  Company Number: US-ABBVIE-14K-163-1294726-00

PATIENT
  Age: 38 Year
  Sex: Male

DRUGS (9)
  1. PREDNISONE. [Concomitant]
     Active Substance: PREDNISONE
     Indication: PRODUCT USED FOR UNKNOWN INDICATION
  2. XANAX [Concomitant]
     Active Substance: ALPRAZOLAM
     Indication: ANXIETY
  3. HUMIRA [Suspect]
     Active Substance: ADALIMUMAB
     Indication: COLITIS ULCERATIVE
     Route: 065
     Dates: start: 20140926, end: 20140926
  4. OMEPRAZOLE. [Concomitant]
     Active Substance: OMEPRAZOLE
     Indication: HIATUS HERNIA
     Dosage: 20 MG TO 40 MG
  5. ZOLOFT [Concomitant]
     Active Substance: SERTRALINE HYDROCHLORIDE
     Indication: ANXIETY
  6. PREDNISONE. [Concomitant]
     Active Substance: PREDNISONE
     Dosage: TAPERING THE DOSE, FOR ONE WEEK
  7. HUMIRA [Suspect]
     Active Substance: ADALIMUMAB
     Route: 065
  8. ASACOL HD [Concomitant]
     Active Substance: MESALAMINE
     Indication: COLITIS ULCERATIVE
  9. PREDNISONE. [Concomitant]
     Active Substance: PREDNISONE
     Dosage: FOR ONE WEEK

REACTIONS (1)
  - Injection site pain [Recovered/Resolved]

NARRATIVE: CASE EVENT DATE: 20140926
